FAERS Safety Report 6536916-X (Version None)
Quarter: 2010Q1

REPORT INFORMATION
  Report Type: 
  Country: None (occurrence: None)
  Receive Date: 20100113
  Receipt Date: 20100108
  Transmission Date: 20100710
  Serious: Yes (Hospitalization, Other)
  Sender: FDA-Public Use
  Company Number: US-ABBOTT-10P-163-0618324-00

PATIENT
  Sex: Female
  Weight: 74.91 kg

DRUGS (14)
  1. HUMIRA [Suspect]
     Indication: CROHN'S DISEASE
     Route: 058
     Dates: start: 20091101, end: 20091202
  2. HUMIRA [Suspect]
     Indication: COLITIS
     Route: 058
  3. LISINOPRIL [Concomitant]
     Indication: BLOOD PRESSURE INCREASED
     Dates: start: 20091201
  4. PERCOCET [Concomitant]
     Indication: PAIN
     Dates: start: 20091201
  5. PREDNISONE [Concomitant]
     Indication: CROHN'S DISEASE
     Route: 048
  6. PREDNISONE [Concomitant]
     Indication: RASH
  7. IRON SUPPLEMENTS [Concomitant]
     Indication: ANAEMIA
  8. PENTASA [Concomitant]
     Indication: CROHN'S DISEASE
     Dosage: 8 TABLETS TOTAL
     Route: 048
  9. OMEPRAZOLE [Concomitant]
     Indication: DRUG USE FOR UNKNOWN INDICATION
  10. UNKNOWN STEROID SUPPOSITORY [Concomitant]
     Indication: DRUG USE FOR UNKNOWN INDICATION
     Route: 054
  11. ZOLOFT [Concomitant]
     Indication: DRUG USE FOR UNKNOWN INDICATION
     Route: 048
     Dates: start: 20091201
  12. MULTI-VITAMIN [Concomitant]
     Indication: DRUG USE FOR UNKNOWN INDICATION
  13. LOVAZA [Concomitant]
     Indication: DRUG USE FOR UNKNOWN INDICATION
  14. NEXIUM [Concomitant]
     Indication: DRUG USE FOR UNKNOWN INDICATION

REACTIONS (10)
  - ABDOMINAL DISCOMFORT [None]
  - BLOOD PRESSURE INCREASED [None]
  - CONSTIPATION [None]
  - GASTROINTESTINAL OEDEMA [None]
  - HYPOPHAGIA [None]
  - INFLAMMATION [None]
  - INTESTINAL STENOSIS [None]
  - INTRA-ABDOMINAL PRESSURE INCREASED [None]
  - PAIN [None]
  - RASH [None]
